FAERS Safety Report 5039290-3 (Version None)
Quarter: 2006Q2

REPORT INFORMATION
  Report Type: 
  Country: None (occurrence: None)
  Receive Date: 20060629
  Receipt Date: 20060623
  Transmission Date: 20061013
  Serious: Yes (Other)
  Sender: FDA-Public Use
  Company Number: CA-JNJFOC-20060605345

PATIENT
  Sex: Female

DRUGS (5)
  1. LEVAQUIN [Suspect]
     Indication: DRUG USE FOR UNKNOWN INDICATION
  2. COMBIVENT [Concomitant]
     Indication: RESPIRATORY DISORDER
  3. FLOVENT [Concomitant]
     Indication: RESPIRATORY DISORDER
  4. SPIRIVA [Concomitant]
     Indication: RESPIRATORY DISORDER
  5. OCUFLOX [Concomitant]

REACTIONS (1)
  - BLINDNESS [None]
